FAERS Safety Report 11376547 (Version 7)
Quarter: 2016Q3

REPORT INFORMATION
  Report Type: Spontaneous
  Country: US (occurrence: US)
  Receive Date: 20150813
  Receipt Date: 20160824
  Transmission Date: 20161109
  Serious: Yes (Hospitalization, Other)
  Sender: FDA-Public Use
  Company Number: US-009507513-1508USA005597

PATIENT
  Sex: Female

DRUGS (3)
  1. FOSAMAX [Suspect]
     Active Substance: ALENDRONATE SODIUM
     Indication: OSTEOPOROSIS
     Dosage: 70 MG, UNKNOWN
     Route: 048
     Dates: start: 20021119, end: 200701
  2. FOSAMAX [Suspect]
     Active Substance: ALENDRONATE SODIUM
     Dosage: UNK, UNKNOWN
     Route: 048
     Dates: end: 20061129
  3. FOSAMAX [Suspect]
     Active Substance: ALENDRONATE SODIUM
     Dosage: UNK, UNKNOWN
     Route: 048
     Dates: start: 20070425

REACTIONS (12)
  - Hepatitis C [Unknown]
  - Limb asymmetry [Unknown]
  - Femur fracture [Unknown]
  - Gastrooesophageal reflux disease [Unknown]
  - Drug hypersensitivity [Unknown]
  - Femur fracture [Recovered/Resolved]
  - Fall [Unknown]
  - Knee deformity [Unknown]
  - Wrist fracture [Unknown]
  - Postoperative fever [Recovered/Resolved]
  - Fall [Unknown]
  - Tooth injury [Not Recovered/Not Resolved]

NARRATIVE: CASE EVENT DATE: 2002
